FAERS Safety Report 6687856-7 (Version None)
Quarter: 2010Q2

REPORT INFORMATION
  Report Type: 
  Country: None (occurrence: None)
  Receive Date: 20100409
  Receipt Date: 20091112
  Transmission Date: 20101027
  Serious: Yes (Life-Threatening, Hospitalization)
  Sender: FDA-Public Use
  Company Number: AE  2009-147

PATIENT
  Age: 48 Year
  Sex: Male
  Weight: 100.7 kg

DRUGS (6)
  1. FAZACLO ODT [Suspect]
     Indication: SCHIZOPHRENIA
     Dosage: 25MG DAILY PO
     Route: 048
     Dates: start: 20090921, end: 20091110
  2. VALIUM [Concomitant]
  3. DEPAKOTE [Concomitant]
  4. ATIVAN [Concomitant]
  5. ZYPREXA [Concomitant]
  6. PERPHENAZINE [Concomitant]

REACTIONS (1)
  - PULMONARY EMBOLISM [None]
